FAERS Safety Report 23438107 (Version 1)
Quarter: 2024Q1

REPORT INFORMATION
  Report Type: Spontaneous
  Country: US (occurrence: US)
  Receive Date: 20240124
  Receipt Date: 20240124
  Transmission Date: 20240410
  Serious: Yes (Hospitalization)
  Sender: FDA-Public Use
  Company Number: US-DSJP-DSU-2023-153002

PATIENT
  Sex: Female

DRUGS (1)
  1. VANFLYTA [Suspect]
     Active Substance: QUIZARTINIB DIHYDROCHLORIDE
     Indication: Acute myeloid leukaemia
     Dosage: 35.4 MG, QD FOR 14 DAYS EVERY 28 DAYS CYCLE
     Route: 048
     Dates: start: 20231129

REACTIONS (2)
  - Infection [Recovered/Resolved]
  - Product dose omission issue [Recovered/Resolved]
